FAERS Safety Report 15592292 (Version 2)
Quarter: 2018Q4

REPORT INFORMATION
  Report Type: Report from Study
  Country: BG (occurrence: BG)
  Receive Date: 20181106
  Receipt Date: 20181112
  Transmission Date: 20190205
  Serious: Yes (Death, Hospitalization, Other)
  Sender: FDA-Public Use
  Company Number: BG-BAYER-2018-173633

PATIENT
  Age: 74 Year
  Sex: Female

DRUGS (3)
  1. NEXAVAR [Suspect]
     Active Substance: SORAFENIB
     Indication: RENAL CELL CARCINOMA
     Dosage: 200 MG, BID
     Route: 048
     Dates: start: 20180907
  2. ZOLEDRONATE [Concomitant]
     Active Substance: ZOLEDRONIC ACID
     Dosage: 4 MG, Q1MON
  3. DEGAN [Concomitant]
     Active Substance: METOCLOPRAMIDE HYDROCHLORIDE
     Indication: DYSPEPSIA

REACTIONS (17)
  - Pain in extremity [Not Recovered/Not Resolved]
  - Metastases to bone [Not Recovered/Not Resolved]
  - Asthenia [Not Recovered/Not Resolved]
  - Food refusal [None]
  - Off label use [None]
  - Back pain [Not Recovered/Not Resolved]
  - Mouth ulceration [Recovering/Resolving]
  - Asthenia [None]
  - Bedridden [None]
  - Pruritus [Recovered/Resolved]
  - Nausea [None]
  - Gait inability [None]
  - Oropharyngeal pain [Recovering/Resolving]
  - Pain in extremity [Recovering/Resolving]
  - Renal cell carcinoma [Fatal]
  - Back pain [Recovering/Resolving]
  - Decreased appetite [None]

NARRATIVE: CASE EVENT DATE: 20180912
